FAERS Safety Report 20519913 (Version 1)
Quarter: 2022Q1

REPORT INFORMATION
  Report Type: Spontaneous
  Country: CA (occurrence: CA)
  Receive Date: 20220225
  Receipt Date: 20220225
  Transmission Date: 20220423
  Serious: Yes (Hospitalization, Other)
  Sender: FDA-Public Use
  Company Number: CA-NAPPMUNDI-GBR-2022-0095160

PATIENT
  Age: 87 Year
  Sex: Male

DRUGS (3)
  1. HYDROMORPHONE HYDROCHLORIDE [Suspect]
     Active Substance: HYDROMORPHONE HYDROCHLORIDE
     Indication: Pain
     Dosage: 8 MG, Q24H
     Route: 048
  2. CLOZAPINE [Suspect]
     Active Substance: CLOZAPINE
     Indication: Product used for unknown indication
     Dosage: 25 MG, DAILY
     Route: 048
  3. CLOZAPINE [Suspect]
     Active Substance: CLOZAPINE
     Dosage: 12.5 MG, DAILY
     Route: 048

REACTIONS (3)
  - Asthenia [Unknown]
  - Constipation [Unknown]
  - Pneumonia [Unknown]
